FAERS Safety Report 9626652 (Version 3)
Quarter: 2013Q4

REPORT INFORMATION
  Report Type: Spontaneous
  Country: US (occurrence: US)
  Receive Date: 20131016
  Receipt Date: 20131111
  Transmission Date: 20140711
  Serious: No
  Sender: FDA-Public Use
  Company Number: US-PFIZER INC-2013294712

PATIENT
  Age: 38 Year
  Sex: Female

DRUGS (5)
  1. LYRICA [Suspect]
     Indication: FIBROMYALGIA
     Dosage: 150 MG, 3X/DAY
     Route: 048
     Dates: end: 20131002
  2. LYRICA [Suspect]
     Dosage: 150 MG, 1X/DAY
  3. OMEPRAZOLE [Suspect]
     Indication: GASTROOESOPHAGEAL REFLUX DISEASE
     Dosage: 40 MG, DAILY
     Route: 048
     Dates: end: 20131007
  4. XOPENEX [Concomitant]
     Dosage: UNK
  5. ETHINYL ESTRADIOL W/NORGESTREL [Concomitant]
     Dosage: UNK
     Dates: start: 20130722

REACTIONS (5)
  - Influenza like illness [Unknown]
  - Pain [Unknown]
  - Drug withdrawal syndrome [Unknown]
  - Nausea [Recovered/Resolved]
  - Fatigue [Recovered/Resolved]
